FAERS Safety Report 7624830-8 (Version None)
Quarter: 2011Q3

REPORT INFORMATION
  Report Type: 
  Country: None (occurrence: None)
  Receive Date: 20110720
  Receipt Date: 20110706
  Transmission Date: 20111222
  Serious: Yes (Other)
  Sender: FDA-Public Use
  Company Number: US-BAYER-200937916NA

PATIENT
  Age: 42 Year
  Sex: Male
  Weight: 104.9 kg

DRUGS (8)
  1. BRIMONIDINE [Concomitant]
     Indication: OPTIC ISCHAEMIC NEUROPATHY
     Dosage: 2 GTT (DAILY DOSE), , TOPICAL
     Route: 061
     Dates: start: 20090925
  2. LEVOTHYROXINE SODIUM [Concomitant]
     Indication: HYPOTHYROIDISM
     Dosage: 75 ?G (DAILY DOSE), , ORAL
     Route: 048
     Dates: start: 20090401
  3. TRENTAL [Concomitant]
     Indication: OPTIC ISCHAEMIC NEUROPATHY
     Dosage: 100 MG (DAILY DOSE), , ORAL
     Route: 048
     Dates: start: 20090925
  4. PDE-5 INHIBITOR RETROSPECTIVE CONTROL (STUDY DRUG NOT GIVEN) [Suspect]
     Indication: ERECTILE DYSFUNCTION
     Dosage: STUDY MED NOT GIVEN
  5. HUMALOG [Concomitant]
     Indication: DIABETES MELLITUS
     Dosage: 15 U (DAILY DOSE), , SUBCUTANEOUS
     Route: 058
     Dates: start: 20090401
  6. PRAVASTATIN [Concomitant]
     Indication: HYPERCHOLESTEROLAEMIA
     Dosage: 20 MG (DAILY DOSE), , ORAL
     Route: 048
     Dates: start: 20090401
  7. LISINOPRIL [Concomitant]
     Indication: HYPERTENSION
     Dosage: 20 MG (DAILY DOSE), , ORAL
     Route: 048
     Dates: start: 20090401, end: 20091015
  8. LANTUS [Concomitant]
     Indication: DIABETES MELLITUS
     Dosage: 8 U (DAILY DOSE), , SUBCUTANEOUS
     Route: 058
     Dates: start: 20090401

REACTIONS (2)
  - OPTIC ISCHAEMIC NEUROPATHY [None]
  - VISUAL ACUITY REDUCED [None]
